FAERS Safety Report 21247088 (Version 1)
Quarter: 2022Q3

REPORT INFORMATION
  Report Type: Spontaneous
  Country: US (occurrence: US)
  Receive Date: 20220824
  Receipt Date: 20220824
  Transmission Date: 20221027
  Serious: Yes (Other)
  Sender: FDA-Public Use
  Company Number: US-SUN PHARMACEUTICAL INDUSTRIES LTD-2020R1-244414

PATIENT
  Age: 57 Year
  Sex: Female

DRUGS (1)
  1. VERAPAMIL [Suspect]
     Active Substance: VERAPAMIL HYDROCHLORIDE
     Indication: Product used for unknown indication
     Dosage: 8.5 GRAM
     Route: 065

REACTIONS (5)
  - Intentional overdose [Unknown]
  - Atrioventricular block complete [Recovering/Resolving]
  - Rhythm idioventricular [Recovering/Resolving]
  - Hypotension [Recovering/Resolving]
  - Vasoplegia syndrome [Recovering/Resolving]
